FAERS Safety Report 4495957-7 (Version None)
Quarter: 2004Q4

REPORT INFORMATION
  Report Type: 
  Country: None (occurrence: None)
  Receive Date: 20041108
  Receipt Date: 20041020
  Transmission Date: 20050328
  Serious: Yes (Other)
  Sender: FDA-Public Use
  Company Number: PHHO2004CA15035

PATIENT
  Age: 58 Year
  Sex: Male

DRUGS (4)
  1. CLOZARIL [Suspect]
     Dates: start: 20011024, end: 20020123
  2. CLOZARIL [Suspect]
     Dates: start: 20040407, end: 20040922
  3. RISPERIDONE [Concomitant]
  4. CHLORPROMAZINE [Concomitant]

REACTIONS (2)
  - CONSTIPATION [None]
  - RENAL FAILURE [None]
